FAERS Safety Report 16251011 (Version 1)
Quarter: 2019Q2

REPORT INFORMATION
  Report Type: Spontaneous
  Country: US (occurrence: US)
  Receive Date: 20190429
  Receipt Date: 20190429
  Transmission Date: 20190711
  Serious: No
  Sender: FDA-Public Use
  Company Number: US-PFIZER INC-2018164178

PATIENT
  Age: 43 Year
  Sex: Female
  Weight: 85.71 kg

DRUGS (4)
  1. LYRICA [Suspect]
     Active Substance: PREGABALIN
     Indication: FIBROMYALGIA
     Dosage: 75 MG, THRICE DAILY
     Route: 048
     Dates: start: 20180803, end: 20181101
  2. LYRICA [Suspect]
     Active Substance: PREGABALIN
     Dosage: 100 MG, THRICE DAILY
     Route: 048
     Dates: start: 20190403
  3. LYRICA [Suspect]
     Active Substance: PREGABALIN
     Dosage: 1 TO 2 DF, DAILY
     Route: 048
  4. LYRICA [Suspect]
     Active Substance: PREGABALIN
     Indication: PAIN
     Dosage: 50 MG, UNK
     Route: 048

REACTIONS (6)
  - Road traffic accident [Unknown]
  - Intentional product misuse [Unknown]
  - Intervertebral disc degeneration [Not Recovered/Not Resolved]
  - Pain [Not Recovered/Not Resolved]
  - Intervertebral disc protrusion [Unknown]
  - Myofascial spasm [Not Recovered/Not Resolved]

NARRATIVE: CASE EVENT DATE: 20180819
